FAERS Safety Report 19145330 (Version 1)
Quarter: 2021Q2

REPORT INFORMATION
  Report Type: Spontaneous
  Country: US (occurrence: US)
  Receive Date: 20210416
  Receipt Date: 20210416
  Transmission Date: 20210717
  Serious: Yes (Other)
  Sender: FDA-Public Use
  Company Number: US-SA-2021SA124298

PATIENT
  Age: 15 Year
  Sex: Female

DRUGS (11)
  1. INFLIXIMAB [Suspect]
     Active Substance: INFLIXIMAB
     Indication: CROHN^S DISEASE
     Dosage: UNK
  2. TACROLIMUS. [Suspect]
     Active Substance: TACROLIMUS
     Indication: CROHN^S DISEASE
     Dosage: TACROLIMUS 0.1% OINTMENT
     Route: 061
  3. METHOTREXATE. [Suspect]
     Active Substance: METHOTREXATE
     Indication: VULVAL DISORDER
  4. TRIAMCINOLONE ACETONIDE. [Suspect]
     Active Substance: TRIAMCINOLONE ACETONIDE
     Indication: VULVAL DISORDER
  5. METHOTREXATE. [Suspect]
     Active Substance: METHOTREXATE
     Indication: CROHN^S DISEASE
     Dosage: 25 MG SUBCUTANEOUS INJECTION PER WEEK
     Route: 058
  6. CLOBETASOL [Suspect]
     Active Substance: CLOBETASOL
     Indication: VULVAL DISORDER
  7. TACROLIMUS. [Suspect]
     Active Substance: TACROLIMUS
     Indication: VULVAL DISORDER
  8. TRIAMCINOLONE ACETONIDE. [Suspect]
     Active Substance: TRIAMCINOLONE ACETONIDE
     Indication: CROHN^S DISEASE
     Dosage: 1 ML OF 20 MG/ML
     Route: 026
  9. METRONIDAZOLE. [Suspect]
     Active Substance: METRONIDAZOLE
     Indication: CROHN^S DISEASE
     Route: 048
  10. CLOBETASOL [Suspect]
     Active Substance: CLOBETASOL
     Indication: CROHN^S DISEASE
     Dosage: CLOBETASOL 0.05% OINTMENT
     Route: 061
  11. METRONIDAZOLE. [Suspect]
     Active Substance: METRONIDAZOLE
     Indication: VULVAL DISORDER
     Dosage: METRONIDAZOLE 1% CREAM
     Route: 061

REACTIONS (6)
  - Off label use [Unknown]
  - Vulval abscess [Unknown]
  - Crohn^s disease [Unknown]
  - Staphylococcal infection [Unknown]
  - Rebound effect [Unknown]
  - Beta haemolytic streptococcal infection [Unknown]
